FAERS Safety Report 17455436 (Version 1)
Quarter: 2020Q1

REPORT INFORMATION
  Report Type: Spontaneous
  Country: US (occurrence: US)
  Receive Date: 20200225
  Receipt Date: 20200225
  Transmission Date: 20200409
  Serious: Yes (Hospitalization)
  Sender: FDA-Public Use
  Company Number: US-EMCURE PHARMACEUTICALS LTD-2020-EPL-0156

PATIENT
  Age: 45 Year
  Sex: Male

DRUGS (2)
  1. INVEGA SUSTENNA [Suspect]
     Active Substance: PALIPERIDONE PALMITATE
     Indication: SCHIZOPHRENIA
     Dosage: 234 MILLIGRAM, MONTHLY (FOR THE PAST 2 YEARS)
     Route: 030
  2. RISPERIDONE. [Suspect]
     Active Substance: RISPERIDONE
     Indication: SCHIZOPHRENIA
     Dosage: 3 MILLIGRAM,TWICE DAILY (FOR THE PAST 2 YEARS)
     Route: 048

REACTIONS (6)
  - Diabetes mellitus [Unknown]
  - Dysphoria [Recovered/Resolved]
  - Sexual dysfunction [Unknown]
  - Gynaecomastia [Unknown]
  - Obesity [Unknown]
  - Atrioventricular block first degree [Recovered/Resolved]
